FAERS Safety Report 5995306-9 (Version None)
Quarter: 2008Q4

REPORT INFORMATION
  Report Type: 
  Country: None (occurrence: None)
  Receive Date: 20081212
  Receipt Date: 20080923
  Transmission Date: 20090506
  Serious: No
  Sender: FDA-Public Use
  Company Number: US-ABBOTT-08P-163-0478506-00

PATIENT
  Sex: Male
  Weight: 77.18 kg

DRUGS (6)
  1. HUMIRA [Suspect]
     Indication: CROHN'S DISEASE
     Route: 058
     Dates: start: 20071201, end: 20080101
  2. HUMIRA [Suspect]
     Dates: start: 20080801
  3. HUMIRA [Suspect]
     Dosage: SYRINGE-EVERY 2 WEEKS
     Route: 058
     Dates: start: 20060601, end: 20071201
  4. CYCLOSPORINE-TAPERING [Concomitant]
     Indication: PSORIASIS
     Route: 048
     Dates: start: 20080101
  5. EZETIMIBE [Concomitant]
     Indication: BLOOD CHOLESTEROL INCREASED
     Route: 048
  6. MULTI-VITAMIN [Concomitant]
     Indication: VITAMIN SUPPLEMENTATION
     Route: 048

REACTIONS (2)
  - ARTHRITIS [None]
  - BLOOD UREA INCREASED [None]
